FAERS Safety Report 17087316 (Version 4)
Quarter: 2020Q1

REPORT INFORMATION
  Report Type: Report from Study
  Country: US (occurrence: US)
  Receive Date: 20191128
  Receipt Date: 20200326
  Transmission Date: 20200409
  Serious: Yes (Hospitalization)
  Sender: FDA-Public Use
  Company Number: NVSC2019US048121

PATIENT
  Sex: Female

DRUGS (4)
  1. LENVIMA [Suspect]
     Active Substance: LENVATINIB
     Indication: RENAL CANCER
     Dosage: 18 MG, QD
     Route: 048
  2. AFINITOR [Suspect]
     Active Substance: EVEROLIMUS
     Indication: RENAL CANCER
     Dosage: UNK
     Route: 065
  3. LENVIMA [Suspect]
     Active Substance: LENVATINIB
     Dosage: 18 MG, QD
     Route: 048
  4. AFINITOR [Suspect]
     Active Substance: EVEROLIMUS
     Dosage: 5 MG
     Route: 048

REACTIONS (6)
  - Oedema [Unknown]
  - Blood pressure increased [Recovering/Resolving]
  - Diarrhoea [Recovering/Resolving]
  - Swelling [Unknown]
  - Peripheral swelling [Unknown]
  - Fatigue [Recovering/Resolving]
